FAERS Safety Report 8443627-2 (Version None)
Quarter: 2012Q2

REPORT INFORMATION
  Report Type: 
  Country: None (occurrence: None)
  Receive Date: 20120618
  Receipt Date: 20120607
  Transmission Date: 20120825
  Serious: Yes (Other)
  Sender: FDA-Public Use
  Company Number: US-JNJFOC-20120604907

PATIENT
  Age: 5 Decade
  Sex: Female

DRUGS (3)
  1. CLARITIN [Concomitant]
     Indication: PREMEDICATION
     Route: 065
  2. ACETAMINOPHEN [Concomitant]
     Indication: PREMEDICATION
     Route: 065
  3. REMICADE [Suspect]
     Indication: RHEUMATOID ARTHRITIS
     Dosage: GIVEN AT 125 CC/HOUR
     Route: 042
     Dates: start: 20100101

REACTIONS (5)
  - ANXIETY [None]
  - CHEST PAIN [None]
  - DYSPNOEA [None]
  - INFUSION RELATED REACTION [None]
  - RESTLESSNESS [None]
